FAERS Safety Report 4723408-3 (Version None)
Quarter: 2005Q3

REPORT INFORMATION
  Report Type: 
  Country: None (occurrence: None)
  Receive Date: 20050725
  Receipt Date: 20050718
  Transmission Date: 20060218
  Serious: Yes (Hospitalization)
  Sender: FDA-Public Use
  Company Number: US-KINGPHARMUSA00001-K200500965

PATIENT
  Age: 65 Year
  Sex: Female

DRUGS (8)
  1. ALTACE [Suspect]
     Dosage: 5 MG, QD
     Route: 048
  2. TOPALGIC ^HOUDE^ [Suspect]
     Dosage: 300 MG, QD
     Route: 048
     Dates: end: 20050502
  3. VOLTAREN [Suspect]
  4. INSULATARD NPH HUMAN [Suspect]
     Dosage: 58 U, QD
     Route: 058
  5. ZALDIAR [Suspect]
     Dosage: 150 MG, QD
     Route: 048
     Dates: start: 20050502, end: 20050504
  6. PLAVIX [Suspect]
     Dosage: 75 MG, QD
     Route: 048
  7. LASIX [Concomitant]
     Dosage: 40 MG, UNK
     Route: 048
  8. MOPRAL [Concomitant]
     Dosage: 10 MG, UNK
     Route: 048

REACTIONS (6)
  - DYSKINESIA [None]
  - HEMIPLEGIA [None]
  - HYPERTONIA [None]
  - MUSCLE CONTRACTIONS INVOLUNTARY [None]
  - MUSCLE SPASMS [None]
  - SHOULDER PAIN [None]
